FAERS Safety Report 8914793 (Version 1)
Quarter: 2012Q4

REPORT INFORMATION
  Report Type: 
  Country: IT (occurrence: IT)
  Receive Date: 20121119
  Receipt Date: 20121119
  Transmission Date: 20130627
  Serious: Yes (Other)
  Sender: FDA-Public Use
  Company Number: PHHY2012IT104880

PATIENT
  Age: 17 Year
  Sex: Female

DRUGS (1)
  1. AMOXICILLIN TRIHYDRATE+POTASSIUM CLAVULANATE [Suspect]
     Indication: PHARYNGOTONSILLITIS
     Dosage: UNK UKN, UNK
     Route: 048
     Dates: start: 20120919

REACTIONS (5)
  - Asthenia [Not Recovered/Not Resolved]
  - Hyperpyrexia [Not Recovered/Not Resolved]
  - Diarrhoea [Not Recovered/Not Resolved]
  - Rash morbilliform [Not Recovered/Not Resolved]
  - Pruritus [Not Recovered/Not Resolved]
